FAERS Safety Report 20031427 (Version 1)
Quarter: 2021Q4

REPORT INFORMATION
  Report Type: Spontaneous
  Country: US (occurrence: US)
  Receive Date: 20211103
  Receipt Date: 20211103
  Transmission Date: 20220303
  Serious: No
  Sender: FDA-Public Use
  Company Number: US-ALLERGAN-2106728US

PATIENT
  Age: 35 Year
  Sex: Male

DRUGS (1)
  1. VRAYLAR [Suspect]
     Active Substance: CARIPRAZINE
     Indication: Bipolar II disorder
     Dosage: 1.5 MG, QAM
     Route: 048
     Dates: start: 2020

REACTIONS (7)
  - Product use in unapproved indication [Unknown]
  - Loss of personal independence in daily activities [Recovered/Resolved]
  - Hyperphagia [Recovered/Resolved]
  - Anxiety [Recovered/Resolved]
  - Hyperhidrosis [Recovered/Resolved]
  - Dyskinesia [Recovered/Resolved]
  - Weight increased [Recovered/Resolved]
